FAERS Safety Report 6765144-8 (Version None)
Quarter: 2010Q2

REPORT INFORMATION
  Report Type: 
  Country: None (occurrence: None)
  Receive Date: 20100610
  Receipt Date: 20100610
  Transmission Date: 20101027
  Serious: Yes (Other)
  Sender: FDA-Public Use
  Company Number: None

PATIENT
  Age: 71 Year
  Sex: Male
  Weight: 81.6475 kg

DRUGS (8)
  1. HYTRIN [Suspect]
     Indication: HYPERTENSION
     Dosage: 7 MG CAP ORAL
     Route: 048
  2. ZETIA [Suspect]
  3. ASPIRIN [Concomitant]
  4. FAMOTIDINE [Concomitant]
  5. LISINOPRIL [Concomitant]
  6. PROAIR HFA [Concomitant]
  7. VERAMIST (FLUTICASONE FUROATE) [Concomitant]
  8. NASAL SPRAY [Concomitant]

REACTIONS (1)
  - ALOPECIA [None]
